FAERS Safety Report 20238489 (Version 1)
Quarter: 2021Q4

REPORT INFORMATION
  Report Type: Spontaneous
  Country: US (occurrence: None)
  Receive Date: 20211227
  Receipt Date: 20211227
  Transmission Date: 20220303
  Serious: Yes (Hospitalization)
  Sender: FDA-Public Use
  Company Number: None

PATIENT
  Age: 97 Year
  Sex: Female

DRUGS (16)
  1. MYCOPHENOLIC ACID [Suspect]
     Active Substance: MYCOPHENOLIC ACID
  2. ALENDRONATE [Concomitant]
  3. CELLCEPT [Concomitant]
  4. CENTRUM TAB SILVER [Concomitant]
  5. ENVARSUS XR [Concomitant]
  6. GENTEAL DRO OPTH [Concomitant]
  7. LASIX TAB [Concomitant]
  8. LOSARTAN POT TAB [Concomitant]
  9. METOPROLOL TAB ER [Concomitant]
  10. MULTI-B-PLUS TAB [Concomitant]
  11. OMEPRAZOLE [Concomitant]
  12. OXYBUTYNIN TAB [Concomitant]
  13. PROGRAF CAP [Concomitant]
  14. RIFAMPIN CAP [Concomitant]
  15. TRIAMT/HCTZ TAB [Concomitant]
  16. URSODIOL CAP [Concomitant]

REACTIONS (1)
  - Wrist fracture [None]

NARRATIVE: CASE EVENT DATE: 20211223
